FAERS Safety Report 8574398-7 (Version None)
Quarter: 2012Q3

REPORT INFORMATION
  Report Type: 
  Country: None (occurrence: None)
  Receive Date: 20120806
  Receipt Date: 20120112
  Transmission Date: 20120928
  Serious: Yes (Other)
  Sender: FDA-Public Use
  Company Number: US-ROCHE-1094665

PATIENT
  Sex: Male

DRUGS (2)
  1. XOLAIR [Suspect]
     Indication: ASTHMA
     Route: 065
     Dates: start: 20040622, end: 20110112
  2. XOLAIR [Suspect]
     Indication: RHINITIS SEASONAL

REACTIONS (4)
  - CONDITION AGGRAVATED [None]
  - STRESS [None]
  - ILL-DEFINED DISORDER [None]
  - WHEEZING [None]
